FAERS Safety Report 23793957 (Version 2)
Quarter: 2024Q3

REPORT INFORMATION
  Report Type: Spontaneous
  Country: JP (occurrence: JP)
  Receive Date: 20240429
  Receipt Date: 20240902
  Transmission Date: 20241016
  Serious: Yes (Other)
  Sender: MERCK
  Company Number: JP-MSD-M2024-16418

PATIENT
  Age: 8 Decade
  Sex: Male

DRUGS (1)
  1. KEYTRUDA [Suspect]
     Active Substance: PEMBROLIZUMAB
     Indication: Head and neck cancer stage IV
     Dosage: 200 MILLIGRAM, Q3W
     Route: 041
     Dates: start: 20231101

REACTIONS (4)
  - Bronchiolitis [Recovering/Resolving]
  - Enterocolitis [Recovering/Resolving]
  - Conjunctivitis [Unknown]
  - Diarrhoea [Unknown]

NARRATIVE: CASE EVENT DATE: 20231130
